FAERS Safety Report 13757336 (Version 1)
Quarter: 2017Q3

REPORT INFORMATION
  Report Type: Report from Study
  Country: BR (occurrence: BR)
  Receive Date: 20170716
  Receipt Date: 20170716
  Transmission Date: 20171127
  Serious: Yes (Other)
  Sender: FDA-Public Use
  Company Number: BR-UCBSA-2017027806

PATIENT
  Age: 33 Year
  Sex: Female

DRUGS (3)
  1. CLOBETASOL [Concomitant]
     Active Substance: CLOBETASOL
     Indication: HYPERSENSITIVITY
     Dosage: UNK UNK, 2X/DAY (BID)
     Route: 061
     Dates: start: 201701, end: 201703
  2. PANTOGAR [Concomitant]
     Active Substance: AMINOBENZOIC ACID\CALCIUM PANTOTHENATE\CYSTINE\KERATIN\THIAMINE MONONITRATE
     Indication: ALOPECIA
     Dosage: 2 DF, ONCE DAILY (QD)
     Route: 048
     Dates: start: 201701
  3. CERTOLIZUMAB PEGOL [Suspect]
     Active Substance: CERTOLIZUMAB PEGOL
     Indication: PSORIATIC ARTHROPATHY
     Dosage: 200 MG, EV 15 DAYS
     Dates: start: 201612, end: 201703

REACTIONS (3)
  - Systemic lupus erythematosus [Unknown]
  - Hypersensitivity [Recovered/Resolved]
  - Alopecia [Recovering/Resolving]

NARRATIVE: CASE EVENT DATE: 201701
